FAERS Safety Report 14020053 (Version 1)
Quarter: 2017Q3

REPORT INFORMATION
  Report Type: Spontaneous
  Country: US (occurrence: US)
  Receive Date: 20170928
  Receipt Date: 20170928
  Transmission Date: 20171128
  Serious: No
  Sender: FDA-Public Use
  Company Number: US-ALLERGAN-1714626US

PATIENT
  Sex: Male

DRUGS (2)
  1. RECTIV [Suspect]
     Active Substance: NITROGLYCERIN
     Dosage: UNK, BID
     Route: 054
  2. RECTIV [Suspect]
     Active Substance: NITROGLYCERIN
     Indication: ANAL FISSURE
     Dosage: UNK, QD
     Route: 054

REACTIONS (1)
  - Headache [Recovered/Resolved]
